FAERS Safety Report 6552921-1 (Version None)
Quarter: 2010Q1

REPORT INFORMATION
  Report Type: 
  Country: None (occurrence: None)
  Receive Date: 20100122
  Receipt Date: 20100113
  Transmission Date: 20100710
  Serious: Yes (Hospitalization)
  Sender: FDA-Public Use
  Company Number: TCI2010A00116

PATIENT
  Age: 69 Year
  Sex: Female

DRUGS (2)
  1. ACTOS [Suspect]
     Indication: DIABETES MELLITUS
     Dosage: 15 MG (15 MG, 1 D) PER ORAL; 15 MG (15 MG, 1 IN 2 D) PER ORAL
     Route: 048
     Dates: start: 20030501, end: 20090426
  2. ACTOS [Suspect]
     Indication: DIABETES MELLITUS
     Dosage: 15 MG (15 MG, 1 D) PER ORAL; 15 MG (15 MG, 1 IN 2 D) PER ORAL
     Route: 048
     Dates: start: 20090427, end: 20091013

REACTIONS (4)
  - FALL [None]
  - FRACTURE [None]
  - OEDEMA PERIPHERAL [None]
  - PLEURAL EFFUSION [None]
